FAERS Safety Report 13510755 (Version 1)
Quarter: 2017Q2

REPORT INFORMATION
  Report Type: Spontaneous
  Country: US (occurrence: US)
  Receive Date: 20170503
  Receipt Date: 20170503
  Transmission Date: 20170830
  Serious: No
  Sender: FDA-Public Use
  Company Number: US-BIOGEN-2017BI00393495

PATIENT
  Sex: Male

DRUGS (5)
  1. TECFIDERA [Suspect]
     Active Substance: DIMETHYL FUMARATE
     Route: 065
     Dates: start: 20130530, end: 20130530
  2. TECFIDERA [Suspect]
     Active Substance: DIMETHYL FUMARATE
     Route: 065
     Dates: start: 20130530
  3. TECFIDERA [Suspect]
     Active Substance: DIMETHYL FUMARATE
     Route: 065
     Dates: start: 20140710
  4. TECFIDERA [Suspect]
     Active Substance: DIMETHYL FUMARATE
     Route: 065
     Dates: start: 20130530, end: 20130530
  5. TECFIDERA [Suspect]
     Active Substance: DIMETHYL FUMARATE
     Indication: MULTIPLE SCLEROSIS
     Route: 065
     Dates: start: 20130530

REACTIONS (2)
  - Drug dose omission [Recovered/Resolved]
  - Vertigo [Unknown]
